FAERS Safety Report 20317169 (Version 1)
Quarter: 2022Q1

REPORT INFORMATION
  Report Type: Spontaneous
  Country: DE (occurrence: DE)
  Receive Date: 20220110
  Receipt Date: 20220110
  Transmission Date: 20220423
  Serious: Yes (Hospitalization)
  Sender: FDA-Public Use
  Company Number: DE-ADRED-07083-01

PATIENT
  Age: 52 Year
  Sex: Male
  Weight: 88 kg

DRUGS (11)
  1. PREDNISOLONE [Suspect]
     Active Substance: PREDNISOLONE
     Indication: Product used for unknown indication
     Dosage: 5 MILLIGRAM,  1-0-0-0
     Route: 048
  2. TACROLIMUS [Suspect]
     Active Substance: TACROLIMUS
     Indication: Product used for unknown indication
     Dosage: 0.5 MILLIGRAM,  1-0-1-0
     Route: 048
  3. MYCOPHENOLATE SODIUM [Suspect]
     Active Substance: MYCOPHENOLATE SODIUM
     Dosage: 360 MILLIGRAM, 2-0-2-0
     Route: 048
  4. FLUVASTATIN [Concomitant]
     Active Substance: FLUVASTATIN SODIUM
     Dosage: 40 MG, 0-0-1-0, KAPSELN
     Route: 048
  5. NITRENDIPINE [Concomitant]
     Active Substance: NITRENDIPINE
     Dosage: 10 MILLIGRAM, 1-0-1-0,
     Route: 048
  6. SITAGLIPTIN [Concomitant]
     Active Substance: SITAGLIPTIN
     Dosage: 50 MILLIGRAM, 1-0-0-0,
     Route: 048
  7. TAMSULOSIN [Concomitant]
     Active Substance: TAMSULOSIN
     Indication: Product used for unknown indication
     Dosage: 0.4 MILLIGRAM, 1-0-0-0
     Route: 048
  8. SODIUM BICARBONATE [Concomitant]
     Active Substance: SODIUM BICARBONATE
     Dosage: 1 GRAM, 1-1-1-0,
     Route: 048
  9. CANDESARTAN [Concomitant]
     Active Substance: CANDESARTAN
     Dosage: 16 MILLIGRAM, 0-0-1-0
     Route: 048
  10. METOPROLOL [Concomitant]
     Active Substance: METOPROLOL
     Dosage: 95 MILLIGRAM, 0.5-0-1-0,
     Route: 048
  11. PANTOPRAZOLE SODIUM [Concomitant]
     Active Substance: PANTOPRAZOLE SODIUM
     Dosage: 20 MILLIGRAM, 1-0-0-0,
     Route: 048

REACTIONS (4)
  - Pyrexia [Unknown]
  - Dysuria [Unknown]
  - General physical health deterioration [Unknown]
  - Fatigue [Unknown]
